FAERS Safety Report 15267346 (Version 1)
Quarter: 2018Q3

REPORT INFORMATION
  Report Type: Spontaneous
  Country: US (occurrence: US)
  Receive Date: 20180724
  Receipt Date: 20180724
  Transmission Date: 20181010
  Serious: Yes (Disabling)
  Sender: FDA-Public Use
  Company Number: None

PATIENT
  Age: 55 Year
  Sex: Female
  Weight: 50.8 kg

DRUGS (2)
  1. VITAMIN D [Concomitant]
     Active Substance: CHOLECALCIFEROL
  2. ACETAZOLAMIDE 125MG [Suspect]
     Active Substance: ACETAZOLAMIDE
     Indication: HYPOBARISM
     Dosage: ?          QUANTITY:1 DF DOSAGE FORM;?
     Route: 048
     Dates: start: 20180124, end: 20180129

REACTIONS (4)
  - Ear pain [None]
  - Tinnitus [None]
  - Deafness [None]
  - Eustachian tube disorder [None]

NARRATIVE: CASE EVENT DATE: 20180130
